FAERS Safety Report 7447019-4 (Version None)
Quarter: 2011Q2

REPORT INFORMATION
  Report Type: 
  Country: None (occurrence: None)
  Receive Date: 20110429
  Receipt Date: 20110419
  Transmission Date: 20111010
  Serious: Yes (Other)
  Sender: FDA-Public Use
  Company Number: CN-JNJFOC-20110410097

PATIENT
  Age: 64 Year
  Sex: Female

DRUGS (5)
  1. SPORANOX [Suspect]
     Indication: ONYCHOMYCOSIS
     Route: 048
  2. REPAGLINIDE [Interacting]
     Indication: DIABETES MELLITUS
     Dosage: DOSING: 2 TABLETS IN THE MORNING, 1 TABLET AT NOON, AND 2 TABLETS IN THE EVENING
     Route: 065
  3. VALSARTAN [Concomitant]
     Indication: HYPERTENSION
     Route: 048
  4. NIFEDIPINE [Concomitant]
     Indication: HYPERTENSION
     Route: 048
  5. BETALOC [Concomitant]
     Indication: HYPERTENSION
     Route: 048

REACTIONS (4)
  - DRUG INTERACTION [None]
  - VISION BLURRED [None]
  - EYE SWELLING [None]
  - OEDEMA PERIPHERAL [None]
